FAERS Safety Report 9714218 (Version 1)
Quarter: 2013Q4

REPORT INFORMATION
  Report Type: Spontaneous
  Country: US (occurrence: US)
  Receive Date: 20131126
  Receipt Date: 20131126
  Transmission Date: 20140711
  Serious: No
  Sender: FDA-Public Use
  Company Number: US-GILEAD-2008-0019429

PATIENT
  Sex: Female
  Weight: 79.38 kg

DRUGS (13)
  1. LETAIRIS [Suspect]
     Indication: PULMONARY ARTERIAL HYPERTENSION
     Route: 048
     Dates: start: 20081031
  2. COUMADIN [Concomitant]
     Route: 048
  3. LASIX [Concomitant]
     Route: 048
  4. NORVASC [Concomitant]
     Route: 048
  5. ISOSORBIDE MN [Concomitant]
     Route: 048
  6. TOPROL XL [Concomitant]
     Route: 048
  7. ACTOS [Concomitant]
  8. GLIPIZIDE [Concomitant]
     Route: 048
  9. METFORMIN [Concomitant]
     Route: 048
  10. PLAVIX [Concomitant]
     Route: 048
  11. VYTORIN [Concomitant]
     Route: 048
  12. POTASSIUM CHLORIDE [Concomitant]
     Route: 048
  13. ASPIRIN EC [Concomitant]
     Route: 048

REACTIONS (1)
  - Anaemia [None]
